FAERS Safety Report 8443190-6 (Version None)
Quarter: 2012Q2

REPORT INFORMATION
  Report Type: 
  Country: None (occurrence: None)
  Receive Date: 20120617
  Receipt Date: 20120605
  Transmission Date: 20120825
  Serious: Yes (Life-Threatening)
  Sender: FDA-Public Use
  Company Number: NL-AMGEN-NLDSP2012035728

PATIENT
  Age: 50 Year
  Sex: Female
  Weight: 75 kg

DRUGS (4)
  1. DICLOFENAC SODIUM [Concomitant]
     Dosage: 50 MG, 3X/DAY
     Dates: start: 20070101
  2. OMEPRAZOLE [Concomitant]
     Dosage: 20 MG, 1X/DAY
     Dates: start: 20070101
  3. ENBREL [Suspect]
     Indication: RHEUMATOID ARTHRITIS
     Dosage: 25 MG, WEEKLY
     Dates: start: 20120426, end: 20120514
  4. ASPIRIN AND DIPYRIDAMOLE [Concomitant]
     Dosage: 1 DF, 2X/DAY
     Dates: start: 20111119

REACTIONS (9)
  - MYALGIA [None]
  - CEREBROVASCULAR ACCIDENT [None]
  - DIZZINESS [None]
  - ABDOMINAL DISTENSION [None]
  - OEDEMA [None]
  - RASH [None]
  - FEELING HOT [None]
  - VISION BLURRED [None]
  - SENSATION OF HEAVINESS [None]
